FAERS Safety Report 22141471 (Version 1)
Quarter: 2023Q1

REPORT INFORMATION
  Report Type: Spontaneous
  Country: CN (occurrence: CN)
  Receive Date: 20230327
  Receipt Date: 20230327
  Transmission Date: 20230417
  Serious: Yes (Hospitalization, Other)
  Sender: FDA-Public Use
  Company Number: CN-PFIZER INC-PV202300054681

PATIENT
  Age: 3 Year
  Sex: Male
  Weight: 14 kg

DRUGS (4)
  1. CYTARABINE [Suspect]
     Active Substance: CYTARABINE
     Indication: B-cell type acute leukaemia
     Dosage: 44 MG, 1X/DAY
     Route: 041
     Dates: start: 20230223, end: 20230226
  2. CYTARABINE [Suspect]
     Active Substance: CYTARABINE
     Dosage: 44 MG, 1X/DAY
     Route: 041
     Dates: start: 20230302, end: 20230305
  3. PEGASPARGASE [Suspect]
     Active Substance: PEGASPARGASE
     Indication: B-cell type acute leukaemia
     Dosage: 1475 IU, 1X/DAY
     Route: 030
     Dates: start: 20230222, end: 20230222
  4. CYCLOPHOSPHAMIDE [Suspect]
     Active Substance: CYCLOPHOSPHAMIDE
     Indication: B-cell type acute leukaemia
     Dosage: 590 MG, 1X/DAY
     Route: 041
     Dates: start: 20230221, end: 20230221

REACTIONS (2)
  - Myelosuppression [Recovering/Resolving]
  - Drug-induced liver injury [Recovering/Resolving]

NARRATIVE: CASE EVENT DATE: 20230306
